FAERS Safety Report 6428443-5 (Version None)
Quarter: 2009Q4

REPORT INFORMATION
  Report Type: 
  Country: None (occurrence: None)
  Receive Date: 20091105
  Receipt Date: 20091030
  Transmission Date: 20100525
  Serious: Yes (Hospitalization)
  Sender: FDA-Public Use
  Company Number: A0814879A

PATIENT
  Age: 43 Year
  Sex: Male

DRUGS (8)
  1. MELPHALAN [Suspect]
     Indication: MANTLE CELL LYMPHOMA
     Route: 042
     Dates: start: 20080520
  2. VELCADE [Suspect]
     Indication: MANTLE CELL LYMPHOMA
     Route: 042
     Dates: start: 20080516, end: 20080525
  3. CARMUSTINE [Suspect]
     Indication: MANTLE CELL LYMPHOMA
     Route: 042
     Dates: start: 20080521
  4. ETOPOSIDE [Suspect]
     Indication: MANTLE CELL LYMPHOMA
     Dates: start: 20080522, end: 20080525
  5. ARA-C [Suspect]
     Indication: MANTLE CELL LYMPHOMA
     Route: 042
     Dates: start: 20080522, end: 20080525
  6. RITUXAN [Suspect]
     Indication: MANTLE CELL LYMPHOMA
  7. MOXIFLOXACIN HCL [Concomitant]
  8. CLARITIN [Concomitant]

REACTIONS (2)
  - FEBRILE NEUTROPENIA [None]
  - HYPOXIA [None]
